FAERS Safety Report 18311711 (Version 1)
Quarter: 2020Q3

REPORT INFORMATION
  Report Type: Spontaneous
  Country: BR (occurrence: BR)
  Receive Date: 20200925
  Receipt Date: 20200925
  Transmission Date: 20201103
  Serious: Yes (Other)
  Sender: FDA-Public Use
  Company Number: BR-ASTELLAS-2020US032699

PATIENT
  Age: 85 Year
  Sex: Female

DRUGS (3)
  1. SOLIFENACIN [Suspect]
     Active Substance: SOLIFENACIN
     Indication: URINARY INCONTINENCE
     Dosage: 5 MG, ONCE DAILY [AT NIGHT]
     Route: 048
  2. ZIDER [Concomitant]
     Active Substance: MEMANTINE HYDROCHLORIDE
     Indication: DEMENTIA ALZHEIMER^S TYPE
  3. ZIDER [Concomitant]
     Active Substance: MEMANTINE HYDROCHLORIDE
     Indication: DEMENTIA
     Dosage: UNK UNK, TWICE DAILY
     Route: 048

REACTIONS (1)
  - Dementia Alzheimer^s type [Not Recovered/Not Resolved]
